FAERS Safety Report 5646621-X (Version None)
Quarter: 2008Q1

REPORT INFORMATION
  Report Type: 
  Country: None (occurrence: None)
  Receive Date: 20080303
  Receipt Date: 20080219
  Transmission Date: 20080703
  Serious: Yes (Other)
  Sender: FDA-Public Use
  Company Number: PHBS2008IN02654

PATIENT
  Age: 51 Year
  Sex: Male

DRUGS (9)
  1. PILOCARPINE 2%  (NVO) [Suspect]
     Indication: INTRAOCULAR PRESSURE INCREASED
  2. TIMOLOL MALEATE [Concomitant]
     Indication: INTRAOCULAR PRESSURE INCREASED
     Dosage: UNK, BID
  3. TOPIRAMATE [Suspect]
     Indication: EPILEPSY
  4. DORZOLAMIDE [Concomitant]
     Indication: INTRAOCULAR PRESSURE INCREASED
     Dosage: UNK, BID
  5. BRIMONIDINE TARTRATE [Concomitant]
     Indication: INTRAOCULAR PRESSURE INCREASED
     Dosage: UNK, TID
  6. ACETAZOLAMIDE [Concomitant]
     Indication: INTRAOCULAR PRESSURE INCREASED
     Dosage: 250 MG, TID
  7. CARBAMAZEPINE [Concomitant]
     Indication: EPILEPSY
  8. PHENYTOIN SODIUM [Concomitant]
     Indication: EPILEPSY
  9. PHENOBARBITONE [Concomitant]
     Indication: EPILEPSY

REACTIONS (13)
  - CATARACT [None]
  - CATARACT OPERATION [None]
  - CHOROIDAL DETACHMENT [None]
  - CONDITION AGGRAVATED [None]
  - CONJUNCTIVAL HYPERAEMIA [None]
  - CORNEAL OEDEMA [None]
  - CORNEAL TOUCH [None]
  - DRUG TOXICITY [None]
  - FLAT ANTERIOR CHAMBER OF EYE [None]
  - INTRAOCULAR LENS IMPLANT [None]
  - OPHTHALMIC FLUID DRAINAGE [None]
  - PARACENTESIS [None]
  - PUPIL FIXED [None]
